FAERS Safety Report 8886432 (Version 1)
Quarter: 2012Q4

REPORT INFORMATION
  Report Type: 
  Country: BR (occurrence: BR)
  Receive Date: 20121105
  Receipt Date: 20121105
  Transmission Date: 20130627
  Serious: Yes (Hospitalization)
  Sender: FDA-Public Use
  Company Number: PHHY2012BR099588

PATIENT
  Sex: Female

DRUGS (1)
  1. TRILEPTAL [Suspect]
     Indication: CONVULSION
     Dosage: 2 DF, Daily
     Route: 048

REACTIONS (3)
  - Thyroid neoplasm [Unknown]
  - Malaise [Unknown]
  - Tremor [Unknown]
